FAERS Safety Report 8588304-2 (Version None)
Quarter: 2012Q3

REPORT INFORMATION
  Report Type: 
  Country: None (occurrence: None)
  Receive Date: 20120813
  Receipt Date: 20120731
  Transmission Date: 20120928
  Serious: No
  Sender: FDA-Public Use
  Company Number: AU-ELI_LILLY_AND_COMPANY-AU201207000951

PATIENT
  Sex: Female

DRUGS (4)
  1. FLUTICASONE PROPIONATE [Concomitant]
  2. QUETIAPINE [Concomitant]
     Dosage: 25 MG, QD
  3. SPIRIVA [Concomitant]
     Dosage: 10 MG, QD
  4. ZYPREXA RELPREVV [Suspect]
     Indication: SCHIZOPHRENIA
     Dosage: 405 MG, MONTHLY (1/M)
     Dates: start: 20110212

REACTIONS (2)
  - MATERNAL EXPOSURE DURING PREGNANCY [None]
  - HAEMORRHAGE [None]
